APPROVED DRUG PRODUCT: DIETHYLPROPION HYDROCHLORIDE
Active Ingredient: DIETHYLPROPION HYDROCHLORIDE
Strength: 75MG
Dosage Form/Route: TABLET, EXTENDED RELEASE;ORAL
Application: A091680 | Product #001
Applicant: LANNETT CO INC
Approved: Oct 24, 2011 | RLD: No | RS: Yes | Type: RX